FAERS Safety Report 6133199-X (Version None)
Quarter: 2009Q1

REPORT INFORMATION
  Report Type: 
  Country: None (occurrence: None)
  Receive Date: 20090324
  Receipt Date: 20090310
  Transmission Date: 20090719
  Serious: Yes (Hospitalization)
  Sender: FDA-Public Use
  Company Number: 232700K09USA

PATIENT
  Age: 49 Year
  Sex: Female
  Weight: 136 kg

DRUGS (5)
  1. REBIF [Suspect]
     Indication: MULTIPLE SCLEROSIS
     Dosage: 44 MCG, 3 IN 1 WEEKS, SUBCUTANEOUS
     Route: 058
     Dates: start: 20070301
  2. NEURONTIN [Concomitant]
  3. BACLOFEN [Concomitant]
  4. VYTORIN [Concomitant]
  5. ZOLOFT [Concomitant]

REACTIONS (4)
  - CATHETER RELATED INFECTION [None]
  - CONDITION AGGRAVATED [None]
  - MULTIPLE SCLEROSIS [None]
  - URINARY TRACT INFECTION [None]
